FAERS Safety Report 6067150-8 (Version None)
Quarter: 2009Q1

REPORT INFORMATION
  Report Type: 
  Country: None (occurrence: None)
  Receive Date: 20090203
  Receipt Date: 20090127
  Transmission Date: 20090719
  Serious: Yes (Hospitalization, Congenital Anomaly)
  Sender: FDA-Public Use
  Company Number: 038090

PATIENT
  Age: 20 Year
  Sex: Male
  Weight: 65.8 kg

DRUGS (4)
  1. ADDERALL 20 [Suspect]
     Indication: ATTENTION DEFICIT/HYPERACTIVITY DISORDER
     Dosage: 20 MG, QD, ORAL; 20 MG, QD, ORAL
     Route: 048
     Dates: start: 20070901
  2. ADDERALL 20 [Suspect]
     Indication: ATTENTION DEFICIT/HYPERACTIVITY DISORDER
     Dosage: 20 MG, QD, ORAL; 20 MG, QD, ORAL
     Route: 048
     Dates: start: 20080901
  3. ADVAIR DISKUS 100/50 [Concomitant]
  4. CLARITIN [Concomitant]

REACTIONS (9)
  - ATRIAL SEPTAL DEFECT [None]
  - CARDIAC HYPERTROPHY [None]
  - DYSPNOEA [None]
  - GRAND MAL CONVULSION [None]
  - NO THERAPEUTIC RESPONSE [None]
  - PULMONARY HYPERTENSION [None]
  - RENAL TUBULAR NECROSIS [None]
  - SYNCOPE [None]
  - TACHYCARDIA [None]
